FAERS Safety Report 10218805 (Version 1)
Quarter: 2014Q2

REPORT INFORMATION
  Report Type: Spontaneous
  Country: AU (occurrence: AU)
  Receive Date: 20140605
  Receipt Date: 20140605
  Transmission Date: 20141212
  Serious: Yes (Death, Hospitalization, Other)
  Sender: FDA-Public Use
  Company Number: PHHY2014AU066231

PATIENT
  Age: 45 Year
  Sex: Male

DRUGS (3)
  1. CICLOSPORIN [Suspect]
     Indication: IMMUNOSUPPRESSANT DRUG THERAPY
  2. METHOTREXATE [Suspect]
     Indication: IMMUNOSUPPRESSANT DRUG THERAPY
  3. VALGANCICLOVIR [Concomitant]
     Route: 048

REACTIONS (14)
  - Multi-organ failure [Fatal]
  - Post transplant lymphoproliferative disorder [Unknown]
  - Pyrexia [Unknown]
  - Rash [Recovered/Resolved]
  - Liver function test abnormal [Unknown]
  - Chills [Unknown]
  - Nausea [Unknown]
  - Vomiting [Unknown]
  - Diarrhoea [Unknown]
  - Abdominal pain [Unknown]
  - Oliguria [Unknown]
  - Lactic acidosis [Unknown]
  - Pancytopenia [Unknown]
  - Graft versus host disease in skin [Recovered/Resolved]
